FAERS Safety Report 8995912 (Version 1)
Quarter: 2013Q1

REPORT INFORMATION
  Report Type: Spontaneous
  Country: IT (occurrence: IT)
  Receive Date: 20130103
  Receipt Date: 20130103
  Transmission Date: 20140127
  Serious: Yes (Other)
  Sender: FDA-Public Use
  Company Number: IT-TEVA-378798USA

PATIENT
  Sex: 0

DRUGS (5)
  1. BENDAMUSTINE [Suspect]
     Indication: PLASMA CELL MYELOMA
  2. BORTEZOMIB [Suspect]
     Indication: PLASMA CELL MYELOMA
  3. DEXAMETHASONE [Suspect]
     Indication: PLASMA CELL MYELOMA
  4. ACICLOVIR [Concomitant]
  5. TRIMETHOPRIM SULFAMETHOXAZOLE [Concomitant]

REACTIONS (1)
  - Cardiotoxicity [Unknown]
